FAERS Safety Report 25858937 (Version 1)
Quarter: 2025Q3

REPORT INFORMATION
  Report Type: Spontaneous
  Country: CA (occurrence: CA)
  Receive Date: 20250929
  Receipt Date: 20250929
  Transmission Date: 20251021
  Serious: Yes (Death, Hospitalization, Disabling, Congenital Anomaly)
  Sender: ROCHE
  Company Number: CA-ROCHE-10000395339

PATIENT
  Age: 43 Year
  Sex: Female
  Weight: 68 kg

DRUGS (4)
  1. ACTEMRA [Suspect]
     Active Substance: TOCILIZUMAB
     Indication: Rheumatoid arthritis
     Route: 042
  2. RITUXIMAB [Suspect]
     Active Substance: RITUXIMAB
     Indication: Rheumatoid arthritis
     Route: 065
  3. RITUXIMAB [Suspect]
     Active Substance: RITUXIMAB
     Route: 058
  4. RITUXIMAB [Suspect]
     Active Substance: RITUXIMAB
     Route: 042

REACTIONS (22)
  - Adrenal insufficiency [Fatal]
  - Anti-cyclic citrullinated peptide antibody positive [Fatal]
  - Asthma [Fatal]
  - Chest pain [Fatal]
  - Contraindicated product administered [Fatal]
  - Drug tolerance [Fatal]
  - Maternal exposure during pregnancy [Fatal]
  - Gait inability [Fatal]
  - Hypokalaemia [Fatal]
  - Immunodeficiency [Fatal]
  - Intentional product use issue [Fatal]
  - Joint destruction [Fatal]
  - Loss of consciousness [Fatal]
  - Lower limb fracture [Fatal]
  - Nausea [Fatal]
  - Off label use [Fatal]
  - Polyarthritis [Fatal]
  - Product use in unapproved indication [Fatal]
  - Road traffic accident [Fatal]
  - Therapeutic product effect decreased [Fatal]
  - Therapy non-responder [Fatal]
  - Urticaria [Fatal]
